FAERS Safety Report 16883359 (Version 1)
Quarter: 2019Q4

REPORT INFORMATION
  Report Type: Spontaneous
  Country: US (occurrence: US)
  Receive Date: 20191004
  Receipt Date: 20191004
  Transmission Date: 20200122
  Serious: No
  Sender: FDA-Public Use
  Company Number: US-009507513-1909USA012810

PATIENT
  Age: 43 Year
  Sex: Female
  Weight: 68.03 kg

DRUGS (3)
  1. NEXPLANON [Suspect]
     Active Substance: ETONOGESTREL
     Indication: MIGRAINE
     Dosage: 1 IMPLANT IN THE LEFT ARM, EVERY 3 YEARS
     Route: 059
     Dates: start: 20151015
  2. NEXPLANON [Suspect]
     Active Substance: ETONOGESTREL
     Indication: MUSCLE SPASMS
     Dosage: 1 IMPLANT EVERY 3 YEARS
     Dates: start: 2012, end: 2015
  3. NEXPLANON [Suspect]
     Active Substance: ETONOGESTREL
     Dosage: 1 IMPLANT EVERY 3 YEARS
     Dates: start: 2009, end: 2012

REACTIONS (5)
  - Migraine [Not Recovered/Not Resolved]
  - Product use in unapproved indication [Unknown]
  - Incorrect product administration duration [Unknown]
  - Muscle spasms [Not Recovered/Not Resolved]
  - Complication of device insertion [Not Recovered/Not Resolved]

NARRATIVE: CASE EVENT DATE: 20151015
